FAERS Safety Report 19614439 (Version 2)
Quarter: 2021Q3

REPORT INFORMATION
  Report Type: Spontaneous
  Country: JP (occurrence: JP)
  Receive Date: 20210727
  Receipt Date: 20210813
  Transmission Date: 20211014
  Serious: Yes (Hospitalization)
  Sender: FDA-Public Use
  Company Number: JP-ASTRAZENECA-2021A630852

PATIENT
  Age: 69 Year
  Sex: Female
  Weight: 46 kg

DRUGS (6)
  1. ELIQUIS [Concomitant]
     Active Substance: APIXABAN
     Indication: PULMONARY HYPERTENSION
     Route: 042
     Dates: start: 20210614
  2. TORASET [Concomitant]
     Indication: PAIN
     Route: 048
     Dates: start: 20210602
  3. HEPARIN [Concomitant]
     Active Substance: HEPARIN SODIUM
     Indication: PULMONARY HYPERTENSION
     Dosage: DAILY
     Route: 042
     Dates: start: 20210604, end: 20210614
  4. MAGNESIUM OXIDE. [Concomitant]
     Active Substance: MAGNESIUM OXIDE
     Indication: CONSTIPATION
     Route: 048
  5. PREDONINE [Concomitant]
     Active Substance: PREDNISOLONE
     Route: 042
     Dates: start: 20210525, end: 20210528
  6. BEVESPI AEROSPHERE [Suspect]
     Active Substance: FORMOTEROL FUMARATE\GLYCOPYRROLATE
     Dosage: DOSE UNKNOWN
     Route: 055
     Dates: start: 20210526

REACTIONS (1)
  - Hemiplegia [Not Recovered/Not Resolved]
